FAERS Safety Report 9683649 (Version 1)
Quarter: 2013Q4

REPORT INFORMATION
  Report Type: Spontaneous
  Country: US (occurrence: US)
  Receive Date: 20131112
  Receipt Date: 20131112
  Transmission Date: 20140711
  Serious: No
  Sender: FDA-Public Use
  Company Number: US-PFIZER INC-2013320167

PATIENT
  Age: 50 Year
  Sex: Female
  Weight: 77.1 kg

DRUGS (1)
  1. ADVIL [Suspect]
     Indication: HEADACHE
     Dosage: 200 MG, JUST ONCE
     Route: 048
     Dates: start: 20131106, end: 20131106

REACTIONS (1)
  - Burning sensation [Recovered/Resolved]
